FAERS Safety Report 15753371 (Version 1)
Quarter: 2018Q4

REPORT INFORMATION
  Report Type: Spontaneous
  Country: US (occurrence: US)
  Receive Date: 20181222
  Receipt Date: 20181222
  Transmission Date: 20190205
  Serious: No
  Sender: FDA-Public Use
  Company Number: US-MALLINCKRODT-T201704557

PATIENT
  Sex: Female

DRUGS (1)
  1. FENTANYL TRANSDERMAL SYSTEM [Suspect]
     Active Substance: FENTANYL
     Indication: CEREBROVASCULAR ACCIDENT
     Dosage: 25MCG EVERY 3 DAYS
     Route: 062
     Dates: start: 20170504

REACTIONS (1)
  - Tremor [Unknown]
